FAERS Safety Report 6490944-1 (Version None)
Quarter: 2009Q4

REPORT INFORMATION
  Report Type: 
  Country: None (occurrence: None)
  Receive Date: 20091211
  Receipt Date: 20090701
  Transmission Date: 20100525
  Serious: No
  Sender: FDA-Public Use
  Company Number: US-TYCO HEALTHCARE/MALLINCKRODT-T200901319

PATIENT
  Age: 82 Year
  Sex: Female
  Weight: 76.19 kg

DRUGS (5)
  1. METHYLIN [Suspect]
     Indication: NARCOLEPSY
     Dosage: 10 MG, QID
     Route: 048
     Dates: end: 20090101
  2. DIOVAN                             /01319601/ [Concomitant]
     Indication: HYPERTENSION
     Dosage: 180 MG, QD
     Route: 048
  3. SYNTHROID [Concomitant]
     Indication: HYPOTHYROIDISM
     Dosage: 0.1 MG, QD
     Route: 048
  4. SOTALOL HCL [Concomitant]
     Indication: ATRIAL FIBRILLATION
     Dosage: 80 MG, QD
     Route: 048
  5. METHYLIN [Concomitant]
     Dosage: UNK
     Route: 048

REACTIONS (4)
  - ABDOMINAL PAIN [None]
  - DIARRHOEA [None]
  - FLATULENCE [None]
  - NAUSEA [None]
